FAERS Safety Report 5603126-X (Version None)
Quarter: 2008Q1

REPORT INFORMATION
  Report Type: 
  Country: None (occurrence: None)
  Receive Date: 20080125
  Receipt Date: 20080116
  Transmission Date: 20080703
  Serious: Yes (Other)
  Sender: FDA-Public Use
  Company Number: FR-PFIZER INC-2007103093

PATIENT
  Sex: Female
  Weight: 73 kg

DRUGS (3)
  1. LYRICA [Suspect]
     Indication: NEURALGIA
     Route: 048
     Dates: start: 20070926, end: 20071107
  2. LYRICA [Suspect]
     Indication: DYSAESTHESIA
  3. DESOGESTREL AND ETHINYL ESTRADIOL [Concomitant]
     Route: 048

REACTIONS (1)
  - RASH ERYTHEMATOUS [None]
